FAERS Safety Report 5623543-1 (Version None)
Quarter: 2008Q1

REPORT INFORMATION
  Report Type: 
  Country: None (occurrence: None)
  Receive Date: 20080129
  Receipt Date: 20070509
  Transmission Date: 20080703
  Serious: Yes (Hospitalization, Other)
  Sender: FDA-Public Use
  Company Number: WAES 0705USA02092

PATIENT
  Sex: Female

DRUGS (1)
  1. INVANZ [Suspect]
     Dates: start: 20070301

REACTIONS (1)
  - CONVULSION [None]
